FAERS Safety Report 9262080 (Version 1)
Quarter: 2013Q2

REPORT INFORMATION
  Report Type: Spontaneous
  Country: US (occurrence: US)
  Receive Date: 20130430
  Receipt Date: 20130430
  Transmission Date: 20140414
  Serious: No
  Sender: FDA-Public Use
  Company Number: US-009507513-1304USA015171

PATIENT
  Age: 28 Year
  Sex: Female

DRUGS (2)
  1. IMPLANON [Suspect]
     Indication: CONTRACEPTION
     Dosage: UNK
     Route: 059
     Dates: start: 20130320, end: 20130422
  2. IMPLANON [Suspect]
     Dosage: UNK
     Route: 059
     Dates: start: 20130422

REACTIONS (4)
  - Implant site pruritus [Unknown]
  - Implant site erythema [Unknown]
  - Discomfort [Unknown]
  - Device deployment issue [Unknown]
